FAERS Safety Report 19430000 (Version 7)
Quarter: 2022Q1

REPORT INFORMATION
  Report Type: Report from Study
  Country: US (occurrence: US)
  Receive Date: 20210617
  Receipt Date: 20220208
  Transmission Date: 20220423
  Serious: No
  Sender: FDA-Public Use
  Company Number: NVSC2021US136796

PATIENT
  Age: 54 Year
  Sex: Female
  Weight: 66.68 kg

DRUGS (1)
  1. KESIMPTA [Suspect]
     Active Substance: OFATUMUMAB
     Indication: Product used for unknown indication
     Dosage: 20 MG, QMO
     Route: 058
     Dates: start: 20210510

REACTIONS (9)
  - Muscle spasms [Unknown]
  - Cough [Unknown]
  - Middle ear effusion [Unknown]
  - Nasal congestion [Unknown]
  - Insomnia [Unknown]
  - Nausea [Unknown]
  - Hypersomnia [Unknown]
  - Muscular weakness [Unknown]
  - Fatigue [Unknown]

NARRATIVE: CASE EVENT DATE: 20210521
